FAERS Safety Report 6556099-X (Version None)
Quarter: 2010Q1

REPORT INFORMATION
  Report Type: 
  Country: None (occurrence: None)
  Receive Date: 20100128
  Receipt Date: 20090401
  Transmission Date: 20100710
  Serious: No
  Sender: FDA-Public Use
  Company Number: US-TEVA-190143USA

PATIENT
  Sex: Female

DRUGS (3)
  1. COPAXONE [Suspect]
     Indication: RELAPSING-REMITTING MULTIPLE SCLEROSIS
     Route: 058
     Dates: start: 20060101
  2. FEXOFENADINE [Concomitant]
     Indication: HYPERSENSITIVITY
  3. MONTELUKAST [Concomitant]
     Indication: HYPERSENSITIVITY

REACTIONS (4)
  - INJECTION SITE HAEMORRHAGE [None]
  - INJECTION SITE INFLAMMATION [None]
  - INJECTION SITE PAIN [None]
  - INJECTION SITE REACTION [None]
